FAERS Safety Report 14108382 (Version 5)
Quarter: 2017Q4

REPORT INFORMATION
  Report Type: Spontaneous
  Country: US (occurrence: US)
  Receive Date: 20171019
  Receipt Date: 20171207
  Transmission Date: 20180321
  Serious: Yes (Hospitalization, Other)
  Sender: FDA-Public Use
  Company Number: US-PFIZER INC-2017445786

PATIENT
  Age: 66 Year
  Sex: Female
  Weight: 73.94 kg

DRUGS (6)
  1. XELJANZ XR [Suspect]
     Active Substance: TOFACITINIB CITRATE
     Indication: RHEUMATOID ARTHRITIS
     Dosage: 11 MG, 1X/DAY
     Route: 048
     Dates: start: 2016
  2. EPINEPHRINE. [Suspect]
     Active Substance: EPINEPHRINE
     Indication: ANGIOEDEMA
     Dosage: UNK
  3. PREDNISONE. [Suspect]
     Active Substance: PREDNISONE
     Dosage: TAPERED OFF
  4. XELJANZ XR [Suspect]
     Active Substance: TOFACITINIB CITRATE
     Dosage: 11 MG, 1X/DAY
     Route: 048
     Dates: start: 2015, end: 201708
  5. SOLU-MEDROL [Suspect]
     Active Substance: METHYLPREDNISOLONE SODIUM SUCCINATE
     Indication: ANGIOEDEMA
     Dosage: UNK
  6. DECADRON [Suspect]
     Active Substance: DEXAMETHASONE
     Indication: ANGIOEDEMA
     Dosage: UNK

REACTIONS (6)
  - Blood cholesterol increased [Not Recovered/Not Resolved]
  - Tympanic membrane perforation [Recovered/Resolved with Sequelae]
  - Condition aggravated [Not Recovered/Not Resolved]
  - Swelling [Unknown]
  - Drug ineffective [Unknown]
  - Angioedema [Unknown]

NARRATIVE: CASE EVENT DATE: 201708
